FAERS Safety Report 5085032-5 (Version None)
Quarter: 2006Q3

REPORT INFORMATION
  Report Type: 
  Country: None (occurrence: None)
  Receive Date: 20060815
  Receipt Date: 20060801
  Transmission Date: 20061208
  Serious: Yes (Life-Threatening, Hospitalization, Disabling, Other)
  Sender: FDA-Public Use
  Company Number: US_011075640

PATIENT
  Age: 57 Year
  Sex: Female

DRUGS (5)
  1. HUMALOG [Suspect]
     Indication: DIABETES MELLITUS
     Dosage: AS NEEDED, SUBCUTANEOUS
     Route: 058
     Dates: start: 19990101
  2. HUMULIN N [Suspect]
     Indication: DIABETES MELLITUS
     Dosage: UNKNOWN, SUBCUTANEOUS
     Route: 058
     Dates: start: 19970501
  3. HUMULIN R [Suspect]
     Indication: DIABETES MELLITUS
     Dosage: UNKNOWN, SUBCUTANEOUS
     Route: 058
     Dates: start: 19970501
  4. HUMALOG PEN [Concomitant]
  5. LANTUS [Concomitant]

REACTIONS (5)
  - AMNESIA [None]
  - BLOOD GLUCOSE INCREASED [None]
  - BRAIN NEOPLASM [None]
  - INJECTION SITE IRRITATION [None]
  - INJECTION SITE PAIN [None]
